FAERS Safety Report 6022474-5 (Version None)
Quarter: 2008Q4

REPORT INFORMATION
  Report Type: 
  Country: None (occurrence: None)
  Receive Date: 20081221
  Receipt Date: 20081221
  Transmission Date: 20090506
  Serious: No
  Sender: FDA-Public Use
  Company Number: None

PATIENT
  Age: 61 Year
  Sex: Female
  Weight: 95.2554 kg

DRUGS (2)
  1. ALPHAGAN P [Suspect]
     Indication: GLAUCOMA
     Dosage: 1 DROP IN EACH EYE 2 TIMES A DAY
     Dates: start: 20081009, end: 20081221
  2. ALPHAGAN P [Suspect]

REACTIONS (2)
  - INSTILLATION SITE IRRITATION [None]
  - PHOTOPHOBIA [None]
